FAERS Safety Report 19808535 (Version 1)
Quarter: 2021Q3

REPORT INFORMATION
  Report Type: Spontaneous
  Country: JP (occurrence: JP)
  Receive Date: 20210908
  Receipt Date: 20210908
  Transmission Date: 20211014
  Serious: Yes (Other)
  Sender: FDA-Public Use
  Company Number: JP-PFIZER INC-202101129677

PATIENT
  Age: 64 Year
  Sex: Male

DRUGS (2)
  1. RHEUMATREX [Suspect]
     Active Substance: METHOTREXATE SODIUM
     Dosage: 8 MG, WEEKLY
  2. PREDNISOLONE. [Concomitant]
     Active Substance: PREDNISOLONE
     Dosage: 2.5 MG

REACTIONS (3)
  - C-reactive protein increased [Unknown]
  - Pneumocystis jirovecii pneumonia [Unknown]
  - KL-6 increased [Unknown]

NARRATIVE: CASE EVENT DATE: 201109
